FAERS Safety Report 8199273 (Version 6)
Quarter: 2020Q4

REPORT INFORMATION
  Report Type: Spontaneous
  Country: NL (occurrence: NL)
  Receive Date: 20111025
  Receipt Date: 20201111
  Transmission Date: 20210114
  Serious: Yes (Other)
  Sender: FDA-Public Use
  Company Number: NL-TEVA-306156ISR

PATIENT
  Age: 55 Year
  Sex: Female
  Weight: 54 kg

DRUGS (9)
  1. METHOTREXAAT TABLET 2,5MG (OUD) - NON-CURRENT DRUG / BRAND NAME NOT SP [Concomitant]
     Dosage: MTX 6 X 2.5 MG (15 MG/WEEK),THERAPY END DATE:ASKU
     Dates: start: 2004
  2. SIMVASTATINE TABLET 40MG - NON-CURRENT DRUG / BRAND NAME NOT SPECIFIED [Concomitant]
     Dosage: 40 MILLIGRAM DAILY; THERAPY END DATE :ASKU
     Dates: start: 2007
  3. BISOPROLOL TABLET FO 2,5MG - NON-CURRENT DRUG / BISOPROLOLFUMARAAT RP [Suspect]
     Active Substance: BISOPROLOL FUMARATE
     Indication: MYOCARDIAL INFARCTION
     Dosage: 2.5 MILLIGRAM DAILY; THERAPY END DATE :ASKU
     Route: 065
     Dates: start: 2007
  4. PARACETAMOL/CODEINE TABLET 500/20MG / BRAND NAME NOT SPECIFIED [Concomitant]
     Dosage: 500/20,1 DOSAGE FORMS,THERAPY END DATE :ASKU
     Dates: start: 2010
  5. HUMIRA [Suspect]
     Active Substance: ADALIMUMAB
     Indication: RHEUMATOID ARTHRITIS
     Dosage: 40MG / 2 WEEKS, THERAPY END DATE  ASKU,ADALIMUMAB INJVLST 50MG/ML / HUMIRA 40 INJVLST 50MG/ML WWSP 0
     Route: 065
     Dates: start: 2006
  6. METHOTREXAAT TABLET 2,5MG (OUD) - NON-CURRENT DRUG / BRAND NAME NOT SP [Concomitant]
     Dosage: 20 MG/WEEK
  7. ACETYLSALICYLZUUR TABLET 80MG / BRAND NAME NOT SPECIFIED [Concomitant]
     Active Substance: ASPIRIN
     Dosage: 80 MG,THERAPY END DATE :ASKU
     Dates: start: 2007
  8. FLUTICASON AEROSOL 125UG/DO / FLIXOTIDE AER CFKVR 125MCG/DO SPBS 120 D [Concomitant]
     Dosage: DOSAGE UNKNOWN, THERAPY END DATE :ASKU,1 DOSAGE FORMS
     Dates: start: 2006
  9. OMEPRAZOL CAPSULE MGA 20MG - NON-CURRENT DRUG / BRAND NAME NOT SPECIFI [Concomitant]
     Active Substance: OMEPRAZOLE
     Dosage: 20 MILLIGRAM DAILY; THERAPY END DATE:ASKU
     Dates: start: 2004

REACTIONS (1)
  - Retroperitoneal fibrosis [Recovering/Resolving]
